FAERS Safety Report 8274834-X (Version None)
Quarter: 2012Q2

REPORT INFORMATION
  Report Type: 
  Country: None (occurrence: None)
  Receive Date: 20120411
  Receipt Date: 20120403
  Transmission Date: 20120825
  Serious: Yes (Other)
  Sender: FDA-Public Use
  Company Number: US-JNJFOC-20120401956

PATIENT
  Age: 56 Year
  Sex: Male
  Weight: 115.21 kg

DRUGS (1)
  1. NEUTROGENA T/GEL THERAPEUTIC SHAMPOO ORIGINAL FORMULA [Suspect]
     Indication: PRODUCT USED FOR UNKNOWN INDICATION
     Dosage: 1/4 TEASPOON STARTED YEARS AGO
     Route: 061

REACTIONS (2)
  - DIPLOPIA [None]
  - ACCIDENTAL EXPOSURE [None]
